FAERS Safety Report 15634242 (Version 1)
Quarter: 2018Q4

REPORT INFORMATION
  Report Type: Spontaneous
  Country: US (occurrence: US)
  Receive Date: 20181119
  Receipt Date: 20181119
  Transmission Date: 20190205
  Serious: No
  Sender: FDA-Public Use
  Company Number: US-MIST-TIR-2018-1050

PATIENT
  Age: 59 Year
  Sex: Female

DRUGS (6)
  1. TIROSINT [Suspect]
     Active Substance: LEVOTHYROXINE SODIUM
     Indication: RADIOACTIVE IODINE THERAPY
  2. TIROSINT [Suspect]
     Active Substance: LEVOTHYROXINE SODIUM
     Indication: RADIOACTIVE IODINE THERAPY
  3. TIROSINT [Suspect]
     Active Substance: LEVOTHYROXINE SODIUM
     Indication: BASEDOW^S DISEASE
  4. TIROSINT [Suspect]
     Active Substance: LEVOTHYROXINE SODIUM
     Indication: HYPOTHYROIDISM
     Dosage: 88MCG DAILY
     Route: 048
     Dates: start: 201808, end: 201809
  5. TIROSINT [Suspect]
     Active Substance: LEVOTHYROXINE SODIUM
     Indication: BASEDOW^S DISEASE
  6. TIROSINT [Suspect]
     Active Substance: LEVOTHYROXINE SODIUM
     Indication: HYPOTHYROIDISM
     Dosage: 75MCG DAILY
     Route: 048
     Dates: start: 201809

REACTIONS (3)
  - Pain in extremity [Not Recovered/Not Resolved]
  - Thyroid function test abnormal [Unknown]
  - Drug level above therapeutic [Unknown]

NARRATIVE: CASE EVENT DATE: 201809
